FAERS Safety Report 8505499-7 (Version None)
Quarter: 2012Q3

REPORT INFORMATION
  Report Type: 
  Country: None (occurrence: None)
  Receive Date: 20120712
  Receipt Date: 20120705
  Transmission Date: 20120928
  Serious: Yes (Other)
  Sender: FDA-Public Use
  Company Number: GB-JNJFOC-20120703609

PATIENT
  Age: 49 Year
  Sex: Female
  Weight: 94.3 kg

DRUGS (3)
  1. ARCOXIA [Concomitant]
     Dates: start: 20110812
  2. ETORICOXIB [Concomitant]
     Dates: start: 20110812
  3. REMICADE [Suspect]
     Indication: PSORIASIS
     Route: 042
     Dates: start: 20100305, end: 20110818

REACTIONS (1)
  - LUPUS-LIKE SYNDROME [None]
